FAERS Safety Report 21721047 (Version 1)
Quarter: 2022Q4

REPORT INFORMATION
  Report Type: Spontaneous
  Country: GR (occurrence: GR)
  Receive Date: 20221213
  Receipt Date: 20221213
  Transmission Date: 20230113
  Serious: Yes (Other)
  Sender: FDA-Public Use
  Company Number: GR-PFIZER INC-PV202200058127

PATIENT
  Age: 70 Year
  Sex: Female

DRUGS (4)
  1. XANAX [Interacting]
     Active Substance: ALPRAZOLAM
     Indication: Grief reaction
     Dosage: 0.5 MILLIGRAM, QD (0.5 MG, DAILY)
     Route: 065
     Dates: start: 2022
  2. XANAX [Interacting]
     Active Substance: ALPRAZOLAM
     Dosage: QD (QD, 0.5 MG-3 MG)
     Route: 048
     Dates: start: 202206
  3. XANAX [Interacting]
     Active Substance: ALPRAZOLAM
     Dosage: QD (RANGE FROM 0.5 TO 2 MG/ DAY)
     Route: 048
  4. MOXONIDINE [Interacting]
     Active Substance: MOXONIDINE
     Indication: Hypertension
     Dosage: 0.3 MILLIGRAM, QD (0.3 MG, DAILY)
     Route: 065
     Dates: start: 202205

REACTIONS (3)
  - Hypotension [Recovered/Resolved]
  - Drug interaction [Recovered/Resolved]
  - Intentional product use issue [Recovered/Resolved]
